FAERS Safety Report 4378185-5 (Version None)
Quarter: 2004Q2

REPORT INFORMATION
  Report Type: 
  Country: None (occurrence: None)
  Receive Date: 20040609
  Receipt Date: 20040527
  Transmission Date: 20050107
  Serious: Yes (Other)
  Sender: FDA-Public Use
  Company Number: 163-20785-04060003

PATIENT
  Sex: 0

DRUGS (1)
  1. THALOMID [Suspect]
     Indication: HYPERGAMMAGLOBULINAEMIA BENIGN MONOCLONAL
     Dosage: ORAL
     Route: 048

REACTIONS (2)
  - DEMYELINATION [None]
  - NEUROPATHY [None]
